FAERS Safety Report 4633105-0 (Version None)
Quarter: 2005Q2

REPORT INFORMATION
  Report Type: 
  Country: None (occurrence: None)
  Receive Date: 20050412
  Receipt Date: 20050303
  Transmission Date: 20051028
  Serious: Yes (Life-Threatening)
  Sender: FDA-Public Use
  Company Number: CA-GLAXOSMITHKLINE-A0548419A

PATIENT
  Age: 26 Year
  Sex: Female

DRUGS (2)
  1. PAXIL [Suspect]
     Indication: ANXIETY
     Dosage: 20MG PER DAY
     Route: 048
  2. VALIUM [Concomitant]
     Dosage: 5MG AS REQUIRED
     Route: 048

REACTIONS (2)
  - CATECHOLAMINES URINE INCREASED [None]
  - PHAEOCHROMOCYTOMA [None]
